FAERS Safety Report 15213385 (Version 1)
Quarter: 2018Q3

REPORT INFORMATION
  Report Type: Spontaneous
  Country: US (occurrence: US)
  Receive Date: 20180730
  Receipt Date: 20180730
  Transmission Date: 20181010
  Serious: Yes (Hospitalization, Other)
  Sender: FDA-Public Use
  Company Number: US-PROCTER_AND_GAMBLE-GS18085848

PATIENT
  Age: 32 Year
  Sex: Female

DRUGS (1)
  1. P+GUNKNONPGCALCARBONATENPGZCAC# [Suspect]
     Active Substance: CALCIUM CARBONATE
     Indication: DYSPEPSIA
     Dosage: UP TO 12 GRAMS DAILY FOR 3 DAYS PRIOR TO ADMISSION
     Route: 048

REACTIONS (18)
  - Pancreatitis acute [Unknown]
  - Nausea [Unknown]
  - Lipase increased [Unknown]
  - Acute kidney injury [Unknown]
  - Overdose [Unknown]
  - Milk-alkali syndrome [Unknown]
  - Headache [Unknown]
  - Hypercalcaemia [Recovered/Resolved]
  - Blood parathyroid hormone decreased [Recovered/Resolved]
  - Paraesthesia oral [Unknown]
  - Trousseau^s sign [Unknown]
  - Blood bicarbonate increased [Unknown]
  - Hypocalcaemia [Recovered/Resolved]
  - Alkalosis [Unknown]
  - Vomiting [Unknown]
  - Blood parathyroid hormone increased [Unknown]
  - Blood creatinine increased [Unknown]
  - Abdominal pain upper [Recovered/Resolved]
